FAERS Safety Report 13842818 (Version 1)
Quarter: 2017Q3

REPORT INFORMATION
  Report Type: Spontaneous
  Country: US (occurrence: US)
  Receive Date: 20170808
  Receipt Date: 20170808
  Transmission Date: 20171127
  Serious: Yes (Death)
  Sender: FDA-Public Use
  Company Number: US-SA-2017SA113606

PATIENT
  Age: 49 Year
  Sex: Male

DRUGS (1)
  1. AUBAGIO [Suspect]
     Active Substance: TERIFLUNOMIDE
     Indication: MULTIPLE SCLEROSIS RELAPSE
     Route: 048

REACTIONS (3)
  - Muscular weakness [Unknown]
  - Gait disturbance [Unknown]
  - Procedural complication [Fatal]

NARRATIVE: CASE EVENT DATE: 201705
